FAERS Safety Report 4713948-5 (Version None)
Quarter: 2005Q3

REPORT INFORMATION
  Report Type: 
  Country: None (occurrence: None)
  Receive Date: 20050713
  Receipt Date: 20050624
  Transmission Date: 20060218
  Serious: Yes (Other)
  Sender: FDA-Public Use
  Company Number: FR_050606711

PATIENT
  Age: 38 Year
  Sex: Female

DRUGS (1)
  1. ZYPREXA [Suspect]
     Indication: SCHIZOPHRENIA
     Dosage: 30 MG/1 DAY
     Route: 048
     Dates: start: 20050622

REACTIONS (3)
  - LEUKOCYTOSIS [None]
  - NEUTROPHIL PERCENTAGE INCREASED [None]
  - PRESCRIBED OVERDOSE [None]
